FAERS Safety Report 6790899-6 (Version None)
Quarter: 2010Q2

REPORT INFORMATION
  Report Type: 
  Country: None (occurrence: None)
  Receive Date: 20100624
  Receipt Date: 20100617
  Transmission Date: 20101027
  Serious: Yes (Hospitalization)
  Sender: FDA-Public Use
  Company Number: B0661000A

PATIENT
  Sex: Male

DRUGS (9)
  1. AUGMENTIN '125' [Suspect]
     Indication: LUNG DISORDER
     Dosage: 1G PER DAY
     Route: 042
     Dates: start: 20100317, end: 20100317
  2. CEFTRIAXONE [Suspect]
     Indication: LUNG DISORDER
     Dosage: 1G PER DAY
     Route: 048
     Dates: start: 20100318, end: 20100323
  3. ZOLOFT [Suspect]
     Indication: DRUG USE FOR UNKNOWN INDICATION
     Dosage: 50MG PER DAY
     Route: 048
     Dates: start: 20100302, end: 20100317
  4. NOCTRAN [Suspect]
     Indication: DRUG USE FOR UNKNOWN INDICATION
     Dosage: 1UNIT PER DAY
     Route: 048
     Dates: end: 20100317
  5. SINTROM [Suspect]
     Indication: DRUG USE FOR UNKNOWN INDICATION
     Dosage: 1.25UNIT PER DAY
     Route: 048
     Dates: end: 20100317
  6. ISOSORBIDE DINITRATE [Suspect]
     Indication: DRUG USE FOR UNKNOWN INDICATION
     Dosage: 20MG TWICE PER DAY
     Route: 048
     Dates: end: 20100317
  7. PERINDOPRIL [Suspect]
     Indication: DRUG USE FOR UNKNOWN INDICATION
     Dosage: 5MG PER DAY
     Route: 048
     Dates: end: 20100317
  8. AMLODIPINE [Suspect]
     Indication: DRUG USE FOR UNKNOWN INDICATION
     Route: 048
     Dates: end: 20100317
  9. AMIODARONE HCL [Concomitant]
     Dosage: 200MG PER DAY
     Route: 048
     Dates: end: 20100415

REACTIONS (5)
  - BLISTER [None]
  - CONDITION AGGRAVATED [None]
  - DRUG HYPERSENSITIVITY [None]
  - ERYTHEMA [None]
  - RASH [None]
